FAERS Safety Report 7438812-2 (Version None)
Quarter: 2011Q2

REPORT INFORMATION
  Report Type: 
  Country: None (occurrence: None)
  Receive Date: 20110426
  Receipt Date: 20110413
  Transmission Date: 20111010
  Serious: Yes (Death, Other)
  Sender: FDA-Public Use
  Company Number: FR-WATSON-2011-03815

PATIENT
  Age: 45 Year
  Sex: Male

DRUGS (3)
  1. CYCLOPHOSPHAMIDE [Suspect]
     Indication: COLITIS ULCERATIVE
     Dosage: UNK
  2. AZATHIOPRINE [Suspect]
     Indication: COLITIS ULCERATIVE
     Dosage: UNK
  3. INFLIXIMAB [Suspect]
     Indication: COLITIS ULCERATIVE
     Dosage: UNK

REACTIONS (2)
  - PULMONARY EMBOLISM [None]
  - DRUG INEFFECTIVE [None]
